FAERS Safety Report 16046352 (Version 1)
Quarter: 2019Q1

REPORT INFORMATION
  Report Type: Spontaneous
  Country: DE (occurrence: DE)
  Receive Date: 20190307
  Receipt Date: 20190307
  Transmission Date: 20190418
  Serious: Yes (Other)
  Sender: FDA-Public Use
  Company Number: DE-DSJP-DSE-2018-154621

PATIENT

DRUGS (2)
  1. LIXIANA [Suspect]
     Active Substance: EDOXABAN TOSYLATE
     Indication: DEEP VEIN THROMBOSIS
  2. LIXIANA [Suspect]
     Active Substance: EDOXABAN TOSYLATE
     Indication: DEEP VEIN THROMBOSIS
     Dosage: 60 MG, QD
     Route: 048
     Dates: start: 201802, end: 201805

REACTIONS (2)
  - Maternal exposure during pregnancy [Unknown]
  - Caesarean section [Unknown]

NARRATIVE: CASE EVENT DATE: 20180923
